FAERS Safety Report 16542524 (Version 3)
Quarter: 2025Q3

REPORT INFORMATION
  Report Type: Spontaneous
  Country: EU (occurrence: EU)
  Receive Date: 20190709
  Receipt Date: 20250910
  Transmission Date: 20251020
  Serious: Yes (Hospitalization, Other)
  Sender: AUROBINDO
  Company Number: EU-AUROBINDO-AUR-APL-2019-038031

PATIENT
  Age: 49 Year
  Sex: Female
  Weight: 68 kg

DRUGS (7)
  1. ATORVASTATIN [Suspect]
     Active Substance: ATORVASTATIN
     Indication: Type IIa hyperlipidaemia
     Route: 065
     Dates: start: 2001
  2. EZETIMIBE [Suspect]
     Active Substance: EZETIMIBE
     Indication: Type IIa hyperlipidaemia
     Route: 048
     Dates: start: 2002
  3. FLUVASTATIN [Suspect]
     Active Substance: FLUVASTATIN SODIUM
     Indication: Type IIa hyperlipidaemia
     Route: 065
     Dates: start: 2002
  4. METHYLPREDNISOLONE [Concomitant]
     Active Substance: METHYLPREDNISOLONE
     Indication: Cogan^s syndrome
     Route: 065
     Dates: start: 2000
  5. SALICYLIC ACID [Concomitant]
     Active Substance: SALICYLIC ACID
     Indication: Cogan^s syndrome
     Route: 065
     Dates: start: 2000
  6. PANTOPRAZOLE [Concomitant]
     Active Substance: PANTOPRAZOLE
     Indication: Cogan^s syndrome
     Route: 065
     Dates: start: 2000
  7. METHOTREXATE [Concomitant]
     Active Substance: METHOTREXATE
     Indication: Cogan^s syndrome
     Dosage: 10 MILLIGRAM, EVERY WEEK (10 MG, QW)
     Route: 065
     Dates: start: 2000

REACTIONS (6)
  - Drug intolerance [Unknown]
  - Myoglobinuria [Recovered/Resolved]
  - Acute kidney injury [Recovered/Resolved]
  - Rhabdomyolysis [Recovered/Resolved]
  - Myalgia [Recovered/Resolved]
  - Blood creatine phosphokinase increased [Unknown]

NARRATIVE: CASE EVENT DATE: 20020101
